FAERS Safety Report 19472104 (Version 1)
Quarter: 2021Q2

REPORT INFORMATION
  Report Type: Report from Study
  Country: DE (occurrence: FR)
  Receive Date: 20210629
  Receipt Date: 20210629
  Transmission Date: 20210717
  Serious: Yes (Hospitalization)
  Sender: FDA-Public Use
  Company Number: DE-TAKEDA-2021TUS037517

PATIENT
  Age: 76 Year
  Sex: Female

DRUGS (12)
  1. UN ALFA [Concomitant]
     Active Substance: ALFACALCIDOL
     Indication: PROPHYLAXIS
     Dosage: 2 UNK, QD
     Route: 048
  2. TEDUGLUTIDE [Suspect]
     Active Substance: TEDUGLUTIDE
     Indication: SHORT-BOWEL SYNDROME
     Dosage: 3 MILLIGRAM (7 DOSES PER WEEK)
     Route: 065
     Dates: start: 20160326, end: 20160524
  3. TEDUGLUTIDE [Suspect]
     Active Substance: TEDUGLUTIDE
     Dosage: 1.5 MILLIGRAM (7 DOSES PEER WEEK)
     Route: 065
     Dates: start: 20160525
  4. TAZOCILLINE [Concomitant]
     Active Substance: PIPERACILLIN SODIUM\TAZOBACTAM SODIUM
     Indication: SEPSIS
     Dosage: 4 GRAM, TID
     Route: 042
     Dates: start: 201802, end: 20180325
  5. TEDUGLUTIDE [Suspect]
     Active Substance: TEDUGLUTIDE
     Indication: SHORT-BOWEL SYNDROME
     Dosage: 3 MILLIGRAM (7 DOSES PER WEEK)
     Route: 065
     Dates: start: 20160326, end: 20160524
  6. TEDUGLUTIDE [Suspect]
     Active Substance: TEDUGLUTIDE
     Dosage: 1.5 MILLIGRAM (7 DOSES PEER WEEK)
     Route: 065
     Dates: start: 20160525
  7. TEDUGLUTIDE [Suspect]
     Active Substance: TEDUGLUTIDE
     Dosage: 1.5 MILLIGRAM (7 DOSES PEER WEEK)
     Route: 065
     Dates: start: 20160525
  8. TEDUGLUTIDE [Suspect]
     Active Substance: TEDUGLUTIDE
     Indication: SHORT-BOWEL SYNDROME
     Dosage: 3 MILLIGRAM (7 DOSES PER WEEK)
     Route: 065
     Dates: start: 20160326, end: 20160524
  9. TEDUGLUTIDE [Suspect]
     Active Substance: TEDUGLUTIDE
     Indication: SHORT-BOWEL SYNDROME
     Dosage: 3 MILLIGRAM (7 DOSES PER WEEK)
     Route: 065
     Dates: start: 20160326, end: 20160524
  10. TROMETAMOL [Concomitant]
     Active Substance: TROMETHAMINE
     Indication: CYSTITIS
     Dosage: 3 GRAM, QOD
     Route: 048
     Dates: start: 20210407, end: 20210411
  11. TEDUGLUTIDE [Suspect]
     Active Substance: TEDUGLUTIDE
     Dosage: 1.5 MILLIGRAM (7 DOSES PEER WEEK)
     Route: 065
     Dates: start: 20160525
  12. LYRICA [Concomitant]
     Active Substance: PREGABALIN
     Indication: PROPHYLAXIS
     Dosage: 75 MILLIGRAM, BID
     Route: 048

REACTIONS (2)
  - Cystitis [Recovered/Resolved]
  - Pyrexia [Recovered/Resolved]

NARRATIVE: CASE EVENT DATE: 20210330
